FAERS Safety Report 25627687 (Version 1)
Quarter: 2025Q3

REPORT INFORMATION
  Report Type: Spontaneous
  Country: GB (occurrence: GB)
  Receive Date: 20250731
  Receipt Date: 20250731
  Transmission Date: 20251021
  Serious: Yes (Other)
  Sender: MERCK SHARP & DOHME LLC
  Company Number: None

PATIENT
  Age: 68 Year
  Sex: Male

DRUGS (13)
  1. PEMBROLIZUMAB [Suspect]
     Active Substance: PEMBROLIZUMAB
     Route: 065
  2. Edoxaban 60mg tablets [Concomitant]
  3. Lansoprazole 15mg orodispersible tablets [Concomitant]
  4. Ensure Compact liquid 125 ml twice daily [Concomitant]
  5. FOLIC ACID [Concomitant]
     Active Substance: FOLIC ACID
  6. ATORVASTATIN CALCIUM [Concomitant]
     Active Substance: ATORVASTATIN CALCIUM
  7. AMLODIPINE [Concomitant]
     Active Substance: AMLODIPINE BESYLATE
  8. Dexamethasone 2mg tablets [Concomitant]
  9. }Zomorph 10mg modified-release capsules (Archimedes Pharma UK Ltd) [Concomitant]
  10. Ferrous fumarate 210mg tablets [Concomitant]
  11. Docusate 100mg capsules [Concomitant]
  12. Morphine sulfate 10mg/5ml oral solution [Concomitant]
  13. ZOPICLONE [Concomitant]
     Active Substance: ZOPICLONE

REACTIONS (1)
  - Hepatotoxicity [Recovered/Resolved]
